FAERS Safety Report 25096350 (Version 3)
Quarter: 2025Q2

REPORT INFORMATION
  Report Type: Spontaneous
  Country: US (occurrence: US)
  Receive Date: 20250319
  Receipt Date: 20250425
  Transmission Date: 20250716
  Serious: No
  Sender: PFIZER
  Company Number: US-PFIZER INC-PV202500031986

PATIENT
  Age: 56 Year
  Sex: Female
  Weight: 54.8 kg

DRUGS (1)
  1. TIVDAK [Suspect]
     Active Substance: TISOTUMAB VEDOTIN-TFTV
     Indication: Cervix carcinoma
     Route: 042
     Dates: start: 20241121

REACTIONS (2)
  - Hypertransaminasaemia [Recovered/Resolved]
  - Hepatic steatosis [Recovered/Resolved]
